FAERS Safety Report 9771225 (Version 2)
Quarter: 2014Q1

REPORT INFORMATION
  Report Type: Spontaneous
  Country: CN (occurrence: CN)
  Receive Date: 20131218
  Receipt Date: 20140303
  Transmission Date: 20141002
  Serious: Yes (Other)
  Sender: FDA-Public Use
  Company Number: CN-ALLERGAN-1319811US

PATIENT
  Age: 40 Year
  Sex: Male

DRUGS (2)
  1. ALPHAGAN 0.2% [Suspect]
     Indication: GLAUCOMA
     Dosage: 0.1 ML, TWICE A DAY
     Route: 047
     Dates: start: 20131010, end: 20131017
  2. ALPHAGAN 0.2% W/V (2 MG/ML) [Suspect]
     Indication: OCULAR HYPERTENSION

REACTIONS (2)
  - Iridocyclitis [Recovered/Resolved]
  - Hypertension [Recovered/Resolved]
